FAERS Safety Report 8858728 (Version 1)
Quarter: 2012Q4

REPORT INFORMATION
  Report Type: Spontaneous
  Country: US (occurrence: None)
  Receive Date: 20121023
  Receipt Date: 20121023
  Transmission Date: 20130627
  Serious: No
  Sender: FDA-Public Use
  Company Number: None

PATIENT
  Age: 19 Year
  Sex: Male
  Weight: 77.11 kg

DRUGS (1)
  1. METHYLPHENIDAT [Suspect]
     Indication: ADHD
     Dosage: Two capsules each morning po
     Route: 048
     Dates: start: 20120823, end: 20121021

REACTIONS (3)
  - Disturbance in attention [None]
  - Condition aggravated [None]
  - Product substitution issue [None]
